FAERS Safety Report 17302063 (Version 1)
Quarter: 2020Q1

REPORT INFORMATION
  Report Type: Spontaneous
  Country: US (occurrence: US)
  Receive Date: 20200122
  Receipt Date: 20200122
  Transmission Date: 20200409
  Serious: No
  Sender: FDA-Public Use
  Company Number: US-ABBVIE-19K-163-3177591-00

PATIENT
  Sex: Female

DRUGS (1)
  1. ORILISSA [Suspect]
     Active Substance: ELAGOLIX SODIUM
     Indication: ENDOMETRIOSIS
     Route: 048
     Dates: start: 2019

REACTIONS (5)
  - Depression [Unknown]
  - General physical health deterioration [Unknown]
  - Condition aggravated [Unknown]
  - Muscle spasms [Unknown]
  - Bipolar II disorder [Unknown]

NARRATIVE: CASE EVENT DATE: 2019
